FAERS Safety Report 14329642 (Version 1)
Quarter: 2017Q4

REPORT INFORMATION
  Report Type: Spontaneous
  Country: US (occurrence: US)
  Receive Date: 20171227
  Receipt Date: 20171227
  Transmission Date: 20180321
  Serious: No
  Sender: FDA-Public Use
  Company Number: US-009507513-1711USA013937

PATIENT
  Sex: Male

DRUGS (1)
  1. ASMANEX [Suspect]
     Active Substance: MOMETASONE FUROATE
     Dosage: 110 MICROGRAM, QD(ONE INHALATION ONCE A DAY )
     Route: 055

REACTIONS (3)
  - Drug dose omission [Unknown]
  - No adverse event [Unknown]
  - Product quality issue [Unknown]
